FAERS Safety Report 15431424 (Version 6)
Quarter: 2020Q1

REPORT INFORMATION
  Report Type: Spontaneous
  Country: US (occurrence: US)
  Receive Date: 20180926
  Receipt Date: 20200319
  Transmission Date: 20200409
  Serious: Yes (Other)
  Sender: FDA-Public Use
  Company Number: US-SA-2018SA266002

PATIENT
  Age: 68 Year
  Sex: Male

DRUGS (5)
  1. TOUJEO MAX [Suspect]
     Active Substance: INSULIN GLARGINE
     Indication: TYPE 2 DIABETES MELLITUS
     Dosage: 120 IU, QD
     Route: 065
  2. TOUJEO MAX [Suspect]
     Active Substance: INSULIN GLARGINE
     Dosage: 206 IU, QD
     Route: 065
  3. TOUJEO MAX [Suspect]
     Active Substance: INSULIN GLARGINE
     Dosage: 200 IU, QD
     Route: 065
  4. TOUJEO MAX [Suspect]
     Active Substance: INSULIN GLARGINE
     Dosage: 204 IU, UNK
     Route: 065
  5. TOUJEO MAX [Suspect]
     Active Substance: INSULIN GLARGINE
     Dosage: 210 IU, QD
     Route: 065

REACTIONS (10)
  - Tremor [Unknown]
  - Glycosylated haemoglobin decreased [Unknown]
  - Blood glucose decreased [Unknown]
  - Peripheral swelling [Unknown]
  - Weight decreased [Unknown]
  - Blood glucose increased [Unknown]
  - Diabetes mellitus inadequate control [Unknown]
  - Pyrexia [Unknown]
  - Intentional dose omission [Unknown]
  - Intentional product use issue [Unknown]
